FAERS Safety Report 4293581-2 (Version None)
Quarter: 2004Q1

REPORT INFORMATION
  Report Type: 
  Country: None (occurrence: None)
  Receive Date: 20040212
  Receipt Date: 20030707
  Transmission Date: 20041129
  Serious: No
  Sender: FDA-Public Use
  Company Number: US-GLAXOSMITHKLINE-A0415410A

PATIENT
  Age: 75 Year
  Sex: Male
  Weight: 59.1 kg

DRUGS (6)
  1. PAXIL [Suspect]
     Dosage: 20MG PER DAY
     Route: 048
  2. ALTACE [Concomitant]
     Dosage: 20U PER DAY
     Route: 048
  3. TOPROL-XL [Concomitant]
     Dosage: 100U PER DAY
     Route: 048
  4. LEVOXYL [Concomitant]
     Dosage: .125U PER DAY
     Route: 048
  5. ASPIRIN [Concomitant]
     Dosage: 325U UNKNOWN
     Route: 048
  6. ZOCOR [Concomitant]
     Dosage: 80U UNKNOWN
     Route: 048

REACTIONS (1)
  - EJACULATION DELAYED [None]
